FAERS Safety Report 4401868-5 (Version None)
Quarter: 2004Q3

REPORT INFORMATION
  Report Type: 
  Country: None (occurrence: None)
  Receive Date: 20040719
  Receipt Date: 20040719
  Transmission Date: 20050211
  Serious: No
  Sender: FDA-Public Use
  Company Number: None

PATIENT
  Age: 1 Month
  Sex: Male

DRUGS (1)
  1. PEPCID [Suspect]
     Dosage: LIQUID

REACTIONS (2)
  - MEDICATION ERROR [None]
  - OVERDOSE [None]
